FAERS Safety Report 5339933-0 (Version None)
Quarter: 2007Q2

REPORT INFORMATION
  Report Type: 
  Country: None (occurrence: None)
  Receive Date: 20070529
  Receipt Date: 20070516
  Transmission Date: 20071010
  Serious: Yes (Hospitalization)
  Sender: FDA-Public Use
  Company Number: B0472130A

PATIENT
  Age: 41 Year
  Sex: Male

DRUGS (4)
  1. ESKALITH [Suspect]
     Indication: DEPRESSION
  2. VALPROATE SODIUM [Suspect]
     Indication: DEPRESSION
  3. VENLAFAXINE HCL [Suspect]
     Indication: DEPRESSION
  4. OPIUM (FORMULATION UNKNOWN) (OPIUM) [Suspect]
     Dosage: INHALED
     Route: 055

REACTIONS (21)
  - AGGRESSION [None]
  - DIARRHOEA [None]
  - DISORIENTATION [None]
  - DRUG ABUSER [None]
  - DRUG LEVEL DECREASED [None]
  - ELEVATED MOOD [None]
  - FLIGHT OF IDEAS [None]
  - GRANDIOSITY [None]
  - HYPERHIDROSIS [None]
  - HYPERREFLEXIA [None]
  - HYPERTHERMIA [None]
  - IDEAS OF REFERENCE [None]
  - INSOMNIA [None]
  - IRRITABILITY [None]
  - LOGORRHOEA [None]
  - MANIA [None]
  - PERSECUTORY DELUSION [None]
  - PSYCHOMOTOR HYPERACTIVITY [None]
  - RESTLESSNESS [None]
  - SEROTONIN SYNDROME [None]
  - TREMOR [None]
